FAERS Safety Report 10302092 (Version 2)
Quarter: 2014Q3

REPORT INFORMATION
  Report Type: Spontaneous
  Country: GB (occurrence: GB)
  Receive Date: 20140714
  Receipt Date: 20140714
  Transmission Date: 20150326
  Serious: Yes (Hospitalization, Disabling, Other)
  Sender: FDA-Public Use
  Company Number: GB-ROCHE-1427869

PATIENT
  Age: 68 Year
  Sex: Female
  Weight: 85 kg

DRUGS (6)
  1. AVASTIN [Suspect]
     Active Substance: BEVACIZUMAB
     Route: 042
     Dates: start: 20140523, end: 20140616
  2. AVASTIN [Suspect]
     Active Substance: BEVACIZUMAB
     Indication: FALLOPIAN TUBE CANCER
     Dosage: 1ST CYCLE
     Route: 042
     Dates: start: 20140501, end: 20140619
  3. LENOGRASTIM [Concomitant]
     Active Substance: LENOGRASTIM
     Indication: FALLOPIAN TUBE CANCER
     Dosage: FOR 5 DAYS POST CHEMOTHERAPY
     Route: 058
  4. LANSOPRAZOLE. [Concomitant]
     Active Substance: LANSOPRAZOLE
     Indication: FALLOPIAN TUBE CANCER
     Route: 048
  5. CARBOPLATIN. [Concomitant]
     Active Substance: CARBOPLATIN
     Indication: FALLOPIAN TUBE CANCER
     Route: 042
     Dates: start: 20140321
  6. TAXOL [Concomitant]
     Active Substance: PACLITAXEL
     Indication: FALLOPIAN TUBE CANCER
     Route: 042
     Dates: start: 20140321

REACTIONS (7)
  - Syncope [Recovering/Resolving]
  - Abasia [Recovering/Resolving]
  - Cerebrovascular accident [Not Recovered/Not Resolved]
  - Blood pressure increased [Unknown]
  - Headache [Recovering/Resolving]
  - Haemorrhage [Recovering/Resolving]
  - Hemiparesis [Recovering/Resolving]

NARRATIVE: CASE EVENT DATE: 20140604
